FAERS Safety Report 17098487 (Version 1)
Quarter: 2019Q4

REPORT INFORMATION
  Report Type: Spontaneous
  Country: US (occurrence: US)
  Receive Date: 20191202
  Receipt Date: 20191202
  Transmission Date: 20200122
  Serious: No
  Sender: FDA-Public Use
  Company Number: US-009507513-1911USA002424

PATIENT
  Age: 62 Year
  Sex: Female

DRUGS (6)
  1. ZOLINZA [Suspect]
     Active Substance: VORINOSTAT
     Indication: T-CELL PROLYMPHOCYTIC LEUKAEMIA
     Dosage: UNK
  2. DEXAMETHASONE. [Concomitant]
     Active Substance: DEXAMETHASONE
     Indication: T-CELL PROLYMPHOCYTIC LEUKAEMIA
  3. VENETOCLAX. [Concomitant]
     Active Substance: VENETOCLAX
     Indication: T-CELL PROLYMPHOCYTIC LEUKAEMIA
     Dosage: UNK
     Route: 048
  4. ALEMTUZUMAB [Concomitant]
     Active Substance: ALEMTUZUMAB
     Indication: T-CELL PROLYMPHOCYTIC LEUKAEMIA
     Dosage: UNK
  5. PENTOSTATIN. [Concomitant]
     Active Substance: PENTOSTATIN
     Indication: T-CELL PROLYMPHOCYTIC LEUKAEMIA
  6. BENDAMUSTINE [Concomitant]
     Active Substance: BENDAMUSTINE
     Indication: T-CELL PROLYMPHOCYTIC LEUKAEMIA
     Dosage: UNK

REACTIONS (1)
  - Off label use [Unknown]
